FAERS Safety Report 8142375 (Version 4)
Quarter: 2013Q4

REPORT INFORMATION
  Report Type: Spontaneous
  Country: GR (occurrence: GR)
  Receive Date: 20110826
  Receipt Date: 20131017
  Transmission Date: 20140711
  Serious: Yes (Life-Threatening, Other)
  Sender: FDA-Public Use
  Company Number: GR-BIOGENIDEC-2011BI024241

PATIENT
  Age: 40 Year
  Sex: Female
  Weight: 80 kg

DRUGS (6)
  1. TYSABRI [Suspect]
     Indication: RELAPSING-REMITTING MULTIPLE SCLEROSIS
     Route: 042
     Dates: start: 20080201, end: 20110501
  2. VENLAFAXINE [Concomitant]
  3. PRAZEPAM [Concomitant]
  4. BROMAZEPAM [Concomitant]
  5. FLUOXETINE [Concomitant]
  6. QUETIAPINE [Concomitant]

REACTIONS (2)
  - Progressive multifocal leukoencephalopathy [Not Recovered/Not Resolved]
  - Multiple sclerosis relapse [Unknown]
